FAERS Safety Report 21338700 (Version 2)
Quarter: 2023Q1

REPORT INFORMATION
  Report Type: Spontaneous
  Country: JP (occurrence: JP)
  Receive Date: 20220915
  Receipt Date: 20230310
  Transmission Date: 20230418
  Serious: Yes (Death, Hospitalization, Other)
  Sender: FDA-Public Use
  Company Number: JP-MSD-M2022-38822

PATIENT
  Age: 80 Year
  Sex: Male

DRUGS (3)
  1. KEYTRUDA [Suspect]
     Active Substance: PEMBROLIZUMAB
     Indication: Oropharyngeal cancer stage IV
     Dosage: 200 MILLIGRAM, Q3W
     Route: 041
     Dates: start: 202208, end: 202208
  2. CISPLATIN [Concomitant]
     Active Substance: CISPLATIN
     Indication: Oropharyngeal cancer stage IV
     Dosage: UNK
     Route: 042
     Dates: start: 202208, end: 2022
  3. FLUOROURACIL [Concomitant]
     Active Substance: FLUOROURACIL
     Indication: Oropharyngeal cancer stage IV
     Dosage: UNK
     Route: 042
     Dates: start: 202208, end: 2022

REACTIONS (3)
  - Neutrophil count decreased [Unknown]
  - Malignant neoplasm progression [Fatal]
  - Lymphocyte count decreased [Unknown]

NARRATIVE: CASE EVENT DATE: 20220101
